FAERS Safety Report 23899146 (Version 1)
Quarter: 2024Q2

REPORT INFORMATION
  Report Type: Spontaneous
  Country: IL (occurrence: IL)
  Receive Date: 20240526
  Receipt Date: 20240526
  Transmission Date: 20240715
  Serious: Yes (Hospitalization)
  Sender: FDA-Public Use
  Company Number: IL-BAYER-2024A074887

PATIENT
  Sex: Male

DRUGS (1)
  1. XARELTO [Suspect]
     Active Substance: RIVAROXABAN
     Indication: Product used for unknown indication
     Route: 048

REACTIONS (6)
  - Haematoma [Unknown]
  - Haemoglobin decreased [Unknown]
  - Anal haemorrhage [Unknown]
  - Intra-abdominal fluid collection [Unknown]
  - Fluid retention [Unknown]
  - Hepatic steatosis [Unknown]
